FAERS Safety Report 16744230 (Version 2)
Quarter: 2020Q1

REPORT INFORMATION
  Report Type: Report from Study
  Country: US (occurrence: US)
  Receive Date: 20190827
  Receipt Date: 20200114
  Transmission Date: 20200409
  Serious: Yes (Death, Other)
  Sender: FDA-Public Use
  Company Number: PHEH2019US034633

PATIENT
  Sex: Female

DRUGS (7)
  1. CALCIUM [Concomitant]
     Active Substance: CALCIUM
     Indication: PRODUCT USED FOR UNKNOWN INDICATION
     Route: 065
  2. ENTRESTO [Suspect]
     Active Substance: SACUBITRIL\VALSARTAN
     Indication: CARDIAC FAILURE CHRONIC
     Dosage: 1 DF (SACUBITRIL 24 MG/ VALSARTAN 26 MG), UNK
     Route: 065
  3. DIGOXINE [Concomitant]
     Active Substance: DIGOXIN
     Indication: PRODUCT USED FOR UNKNOWN INDICATION
     Route: 065
  4. CARVEDILOL. [Concomitant]
     Active Substance: CARVEDILOL
     Indication: PRODUCT USED FOR UNKNOWN INDICATION
     Route: 065
  5. MULTIVITAMINS [Concomitant]
     Active Substance: VITAMINS
     Indication: PRODUCT USED FOR UNKNOWN INDICATION
     Route: 065
  6. POTASSIUM [Concomitant]
     Active Substance: POTASSIUM
     Indication: PRODUCT USED FOR UNKNOWN INDICATION
     Route: 065
  7. ELIQUIS [Concomitant]
     Active Substance: APIXABAN
     Indication: CARDIAC FAILURE
     Route: 065

REACTIONS (21)
  - Cholelithiasis [Unknown]
  - Skin discolouration [Unknown]
  - Asthenia [Unknown]
  - Death [Fatal]
  - Ear congestion [Unknown]
  - Balance disorder [Unknown]
  - Cardiac failure [Unknown]
  - Poor peripheral circulation [Unknown]
  - Malaise [Unknown]
  - Gastrointestinal disorder [Unknown]
  - Gait inability [Unknown]
  - Hypokinesia [Unknown]
  - Fatigue [Unknown]
  - Muscular weakness [Unknown]
  - Pollakiuria [Unknown]
  - Nasal disorder [Unknown]
  - Fluid retention [Not Recovered/Not Resolved]
  - Nervousness [Unknown]
  - Peripheral swelling [Unknown]
  - Memory impairment [Unknown]
  - Fall [Unknown]
